FAERS Safety Report 4265265-8 (Version None)
Quarter: 2004Q1

REPORT INFORMATION
  Report Type: 
  Country: None (occurrence: None)
  Receive Date: 20040107
  Receipt Date: 20031104
  Transmission Date: 20041129
  Serious: Yes (Other)
  Sender: FDA-Public Use
  Company Number: PHHO2003AR14431

PATIENT
  Sex: Male
  Weight: 3 kg

DRUGS (1)
  1. OXCARBAZEPINE VS CARBAMAZEPINE [Suspect]
     Indication: EPILEPSY
     Route: 064

REACTIONS (1)
  - DRUG EXPOSURE DURING PREGNANCY [None]
